FAERS Safety Report 11808643 (Version 3)
Quarter: 2017Q3

REPORT INFORMATION
  Report Type: Spontaneous
  Country: US (occurrence: US)
  Receive Date: 20151207
  Receipt Date: 20170814
  Transmission Date: 20171127
  Serious: No
  Sender: FDA-Public Use
  Company Number: US-ROCHE-1609542

PATIENT
  Sex: Female

DRUGS (4)
  1. PREDNISONE. [Concomitant]
     Active Substance: PREDNISONE
  2. IBUPROFEN. [Concomitant]
     Active Substance: IBUPROFEN
  3. LEFLUNOMIDE. [Concomitant]
     Active Substance: LEFLUNOMIDE
  4. ACTEMRA [Suspect]
     Active Substance: TOCILIZUMAB
     Indication: JUVENILE IDIOPATHIC ARTHRITIS
     Route: 058
     Dates: start: 20150625

REACTIONS (6)
  - Rash [Unknown]
  - Injection site pruritus [Unknown]
  - Urticaria [Unknown]
  - Injection site swelling [Unknown]
  - Pain [Unknown]
  - Musculoskeletal stiffness [Unknown]
